FAERS Safety Report 15000879 (Version 6)
Quarter: 2019Q1

REPORT INFORMATION
  Report Type: Spontaneous
  Country: FR (occurrence: FR)
  Receive Date: 20180612
  Receipt Date: 20190214
  Transmission Date: 20190417
  Serious: Yes (Hospitalization, Other)
  Sender: FDA-Public Use
  Company Number: FR-MYLANLABS-2018M1040524

PATIENT
  Age: 14 Year
  Sex: Female
  Weight: 42.5 kg

DRUGS (32)
  1. VORICONAZOLE. [Interacting]
     Active Substance: VORICONAZOLE
     Dosage: 300 MG,12 HOUR DOSE: SO AS TO KEEP THE TROUGH CONCENTRATION BETWEEN 1.5-5.5MG/L
     Route: 041
  2. PARACETAMOL [Concomitant]
     Active Substance: ACETAMINOPHEN
     Indication: PRODUCT USED FOR UNKNOWN INDICATION
     Dosage: UNK, (FROM THE DAY 154 TO DAY 164)
     Route: 065
  3. TRIMETHOPRIM. [Concomitant]
     Active Substance: TRIMETHOPRIM
     Indication: PRODUCT USED FOR UNKNOWN INDICATION
     Dosage: UNK (STARTED THE DAY 159)
  4. GRANULOCYTE COLONY STIMULATING FACTOR [Concomitant]
     Active Substance: GRANULOCYTE COLONY-STIMULATING FACTOR NOS
     Indication: PRODUCT USED FOR UNKNOWN INDICATION
     Dosage: UNK (FROM THE DAY 154 TO DAY 164)
     Route: 065
  5. VORICONAZOLE. [Interacting]
     Active Substance: VORICONAZOLE
     Dosage: UNK
  6. VORICONAZOLE. [Interacting]
     Active Substance: VORICONAZOLE
     Dosage: 15 MILLIGRAM/KILOGRAM, QD (7.5 MG, TWO TIMES A DAY)
     Route: 042
  7. VORICONAZOLE. [Interacting]
     Active Substance: VORICONAZOLE
     Dosage: 7.5 MILLIGRAM, Q12H
     Route: 048
  8. METHOTREXATE. [Suspect]
     Active Substance: METHOTREXATE
     Indication: ACUTE LYMPHOCYTIC LEUKAEMIA
     Dosage: 5 5 G/M2 OVER 24 HOURS
     Route: 041
  9. VINCRISTINE [Interacting]
     Active Substance: VINCRISTINE
     Dosage: 2 UNK, UNK
     Route: 042
  10. METHOTREXATE. [Suspect]
     Active Substance: METHOTREXATE
     Dosage: 5000 MG/M2, UNK
     Route: 042
  11. VINCRISTINE [Interacting]
     Active Substance: VINCRISTINE
     Dosage: 1.5 UNK, UNK
     Route: 042
  12. VANCOMYCIN [Concomitant]
     Active Substance: VANCOMYCIN
     Indication: PRODUCT USED FOR UNKNOWN INDICATION
     Dosage: UNK (STARTED THE DAY 155)
     Route: 065
  13. VORICONAZOLE. [Interacting]
     Active Substance: VORICONAZOLE
     Indication: BRONCHOPULMONARY ASPERGILLOSIS
     Dosage: UNK, (AFTER 3 WEEKS OF IV, SWITCHED TO ORAL)
     Route: 048
  14. VINCRISTINE SULFATE. [Interacting]
     Active Substance: VINCRISTINE SULFATE
     Indication: PRODUCT USED FOR UNKNOWN INDICATION
     Dosage: 1.5 MG, UNK
  15. PHLOROGLUCINOL [Concomitant]
     Active Substance: PHLOROGLUCINOL
     Indication: PRODUCT USED FOR UNKNOWN INDICATION
     Dosage: UNK (FROM THE DAY 154 TO DAY 164)
     Route: 065
  16. VORICONAZOLE. [Interacting]
     Active Substance: VORICONAZOLE
     Dosage: 350 MG, BID
     Route: 048
  17. VINCRISTINE SULFATE. [Interacting]
     Active Substance: VINCRISTINE SULFATE
     Dosage: 1.5 MG, UNK
     Route: 042
  18. AMPHOTERICIN B, LIPOSOME [Concomitant]
     Active Substance: AMPHOTERICIN B
     Indication: PRODUCT USED FOR UNKNOWN INDICATION
     Dosage: UNK (STARTED THE DAY 159)
     Route: 065
  19. IMIPENEM [Concomitant]
     Active Substance: IMIPENEM
     Indication: PRODUCT USED FOR UNKNOWN INDICATION
     Dosage: UNK (STARTED THE DAY 155)
     Route: 065
  20. FUROSEMIDE. [Concomitant]
     Active Substance: FUROSEMIDE
     Indication: PRODUCT USED FOR UNKNOWN INDICATION
     Dosage: UNK (STARTED THE DAY 159)
     Route: 065
  21. CASPOFUNGIN [Concomitant]
     Active Substance: CASPOFUNGIN
     Indication: PRODUCT USED FOR UNKNOWN INDICATION
     Dosage: 50 MG, QD (LAST DOSE THE DAY 164)
     Route: 065
  22. VORICONAZOLE. [Suspect]
     Active Substance: VORICONAZOLE
     Indication: BRONCHOPULMONARY ASPERGILLOSIS
     Dosage: 300 MG/12 HOURS (AFTER 3 WEEKS OF IV, SWITCHED TO ORAL)
     Route: 042
  23. VINCRISTINE [Interacting]
     Active Substance: VINCRISTINE
     Indication: ACUTE LYMPHOCYTIC LEUKAEMIA
     Dosage: 2 MG, ACTION TAKEN: DOSE REDUCED AND THEN THERAPYCONTINUED. ROUTE: INFUSION
     Route: 065
  24. VINCRISTINE [Interacting]
     Active Substance: VINCRISTINE
     Dosage: 2 MG, UNK (FRALLE 2000-BT PROTOCOL)
     Route: 042
  25. SULFAMETHOXAZOLE [Concomitant]
     Active Substance: SULFAMETHOXAZOLE
     Indication: PRODUCT USED FOR UNKNOWN INDICATION
     Dosage: UNK (STARTED THE DAY 159)
     Route: 065
  26. GABAPENTIN. [Concomitant]
     Active Substance: GABAPENTIN
     Indication: PRODUCT USED FOR UNKNOWN INDICATION
     Dosage: 400 MG, Q8H (FROM THE DAY 154 TO DAY 164)
  27. AMITRIPTYLINE                      /00002202/ [Concomitant]
     Active Substance: AMITRIPTYLINE
     Indication: PRODUCT USED FOR UNKNOWN INDICATION
     Dosage: 12 MG, DAILY
  28. VORICONAZOLE. [Interacting]
     Active Substance: VORICONAZOLE
     Dosage: 350 MG, BID (AFTER 3 WEEKS OF IV, SWITCHED TO ORAL)
     Route: 042
  29. VINCRISTINE [Interacting]
     Active Substance: VINCRISTINE
     Dosage: UNK
  30. VORICONAZOLE. [Interacting]
     Active Substance: VORICONAZOLE
     Dosage: 8.75 MILLIGRAM/KILOGRAM, Q12H
     Route: 048
  31. METHOTREXATE. [Suspect]
     Active Substance: METHOTREXATE
     Dosage: 5 G/M2, OVER 24 HOURS  UNK
     Route: 042
  32. AMIKACIN. [Concomitant]
     Active Substance: AMIKACIN
     Indication: PRODUCT USED FOR UNKNOWN INDICATION
     Dosage: UNK (STARTED THE DAY 155,LAST DOSE THE DAY 164)
     Route: 065

REACTIONS (22)
  - Treatment failure [Unknown]
  - Disease progression [Recovering/Resolving]
  - Inflammation [Recovering/Resolving]
  - Hypoaesthesia [Unknown]
  - Neurotoxicity [Recovered/Resolved]
  - Confusional state [Recovering/Resolving]
  - Drug level below therapeutic [Recovered/Resolved]
  - Neuralgia [Recovering/Resolving]
  - Encephalopathy [Recovered/Resolved]
  - Hallucination, visual [Recovered/Resolved]
  - Hallucination, auditory [Recovered/Resolved]
  - Musculoskeletal pain [Unknown]
  - Drug level increased [Recovered/Resolved]
  - Nervous system disorder [Recovered/Resolved]
  - Disorientation [Recovering/Resolving]
  - Respiratory distress [Recovering/Resolving]
  - Bronchopulmonary aspergillosis [Recovering/Resolving]
  - Labelled drug-drug interaction medication error [Recovering/Resolving]
  - Electric shock [Unknown]
  - Condition aggravated [Recovering/Resolving]
  - Arthralgia [Unknown]
  - Hepatosplenic candidiasis [Recovering/Resolving]
